FAERS Safety Report 9739181 (Version 1)
Quarter: 2013Q4

REPORT INFORMATION
  Report Type: Other
  Country: GB (occurrence: GB)
  Receive Date: 20131209
  Receipt Date: 20131209
  Transmission Date: 20140711
  Serious: Yes (Other)
  Sender: FDA-Public Use
  Company Number: GB-TARO PHARMACEUTICALS U.S.A., INC-2013SUN05104

PATIENT
  Age: 84 Year
  Sex: 0

DRUGS (4)
  1. CARBAMAZEPINE [Suspect]
     Indication: TRIGEMINAL NEURALGIA
     Dosage: 100 MG, OD
     Route: 048
  2. LERCANIDIPINE [Interacting]
     Indication: HYPERTENSION
     Dosage: 1 DF, OD
     Route: 048
     Dates: start: 20131025, end: 20131029
  3. LEVOTHYROXINE [Concomitant]
     Indication: HYPOTHYROIDISM
     Dosage: 200 MCG, TID
     Route: 048
  4. LEVOTHYROXINE [Concomitant]
     Dosage: 50 MCG, OD
     Route: 048

REACTIONS (4)
  - Drug interaction [Unknown]
  - Trigeminal neuralgia [Recovered/Resolved]
  - Condition aggravated [Recovered/Resolved]
  - Pain [Unknown]
